FAERS Safety Report 6614965-0 (Version None)
Quarter: 2010Q1

REPORT INFORMATION
  Report Type: 
  Country: None (occurrence: None)
  Receive Date: 20100226
  Receipt Date: 20100213
  Transmission Date: 20100710
  Serious: Yes (Hospitalization)
  Sender: FDA-Public Use
  Company Number: 2010AP000290

PATIENT
  Age: 58 Year
  Sex: Male

DRUGS (5)
  1. OMEPRAZOLE [Suspect]
     Indication: ABDOMINAL PAIN UPPER
     Dosage: 40 MG;QD
  2. PANTOPRAZOLE SODIUM [Suspect]
  3. LANSOPRAZOLE [Suspect]
  4. CAPTOPRIL [Concomitant]
  5. SIMVASTATIN [Concomitant]

REACTIONS (7)
  - BLOOD PARATHYROID HORMONE DECREASED [None]
  - CONVULSION [None]
  - ELECTROLYTE IMBALANCE [None]
  - HYPOKALAEMIA [None]
  - HYPOMAGNESAEMIA [None]
  - LOSS OF CONSCIOUSNESS [None]
  - MUSCLE SPASMS [None]
